FAERS Safety Report 9195790 (Version 2)
Quarter: 2013Q2

REPORT INFORMATION
  Report Type: Spontaneous
  Country: US (occurrence: None)
  Receive Date: 20120703
  Receipt Date: 20121031
  Transmission Date: 20140414
  Serious: Yes (Other)
  Sender: FDA-Public Use
  Company Number: PHEH2012US010922

PATIENT
  Age: 44 Year
  Sex: Female

DRUGS (7)
  1. GILENYA [Suspect]
     Indication: MULTIPLE SCLEROSIS
     Route: 048
     Dates: start: 20120126
  2. COGENTIN (BENZATROPINE MESILATE) [Concomitant]
  3. FIORICET (BUTALBITAL, CAFFEINE, PARACETAMOL) [Concomitant]
  4. METHADONE (METHADONE) [Concomitant]
  5. KLONOPIN (CLONAZEPAM) [Concomitant]
  6. TOPAMAX (TOPIRAMATE) [Concomitant]
  7. GEODON (ZIPRASIDONE HYDROCHLORIDE) [Concomitant]

REACTIONS (3)
  - Visual acuity reduced [None]
  - Dry mouth [None]
  - Vision blurred [None]
